FAERS Safety Report 4308913-6 (Version None)
Quarter: 2004Q1

REPORT INFORMATION
  Report Type: 
  Country: None (occurrence: None)
  Receive Date: 20040302
  Receipt Date: 20031209
  Transmission Date: 20041129
  Serious: Yes (Death, Hospitalization)
  Sender: FDA-Public Use
  Company Number: 200322540GDDC

PATIENT
  Age: 77 Year
  Sex: Male
  Weight: 66 kg

DRUGS (9)
  1. DOCETAXEL [Suspect]
     Indication: NON-SMALL CELL LUNG CANCER
     Dosage: DOSE: UNK
     Dates: start: 20031029, end: 20031124
  2. CELEBREX [Suspect]
     Indication: NON-SMALL CELL LUNG CANCER
     Route: 048
     Dates: start: 20031029, end: 20031208
  3. DIABEX [Concomitant]
     Indication: DIABETES MELLITUS NON-INSULIN-DEPENDENT
     Route: 048
     Dates: start: 19850101
  4. ASPIRIN [Concomitant]
     Indication: PROPHYLAXIS
     Route: 048
     Dates: start: 19850101
  5. DIAMICRON [Concomitant]
     Indication: DIABETES MELLITUS NON-INSULIN-DEPENDENT
     Route: 048
     Dates: start: 19850101
  6. LASIX [Concomitant]
     Route: 048
     Dates: start: 19850101
  7. CARDIZEM [Concomitant]
     Indication: ISCHAEMIA
     Route: 048
     Dates: start: 19850101
  8. ZOCOR [Concomitant]
     Indication: BLOOD CHOLESTEROL
     Route: 048
     Dates: start: 19850101
  9. MAXOLON [Concomitant]
     Indication: NAUSEA
     Route: 048
     Dates: start: 20031101

REACTIONS (20)
  - CARDIAC FAILURE CONGESTIVE [None]
  - CARDIOMYOPATHY [None]
  - CARDIOPULMONARY FAILURE [None]
  - CHRONIC OBSTRUCTIVE AIRWAYS DISEASE [None]
  - CORONARY ARTERY ATHEROSCLEROSIS [None]
  - CORONARY ARTERY DISEASE [None]
  - FATIGUE [None]
  - LUNG ADENOCARCINOMA [None]
  - LUNG CONSOLIDATION [None]
  - MALIGNANT NEOPLASM PROGRESSION [None]
  - METASTASES TO LYMPH NODES [None]
  - MYOCARDIAL ISCHAEMIA [None]
  - NEPHROSCLEROSIS [None]
  - NON-SMALL CELL LUNG CANCER METASTATIC [None]
  - OSTEOPOROSIS [None]
  - PLEURAL EFFUSION [None]
  - PROSTATE CANCER [None]
  - RESPIRATORY ARREST [None]
  - TESTICULAR ATROPHY [None]
  - TROPONIN INCREASED [None]
